FAERS Safety Report 5020097-8 (Version None)
Quarter: 2006Q2

REPORT INFORMATION
  Report Type: 
  Country: None (occurrence: None)
  Receive Date: 20060607
  Receipt Date: 20060526
  Transmission Date: 20061013
  Serious: Yes (Hospitalization)
  Sender: FDA-Public Use
  Company Number: US-ROCHE-449877

PATIENT
  Age: 31 Year
  Sex: Female
  Weight: 88 kg

DRUGS (3)
  1. VALCYTE [Suspect]
     Indication: DRUG USE FOR UNKNOWN INDICATION
     Route: 048
  2. LEXAPRO [Concomitant]
     Indication: DRUG USE FOR UNKNOWN INDICATION
     Route: 048
  3. UNSPECIFIED MEDICATION [Concomitant]
     Dosage: REPORTED AS SOLUMEDROL.
     Route: 048

REACTIONS (1)
  - HAEMOLYTIC ANAEMIA [None]
